FAERS Safety Report 9972763 (Version 1)
Quarter: 2014Q1

REPORT INFORMATION
  Report Type: Spontaneous
  Country: US (occurrence: US)
  Receive Date: 20140306
  Receipt Date: 20140306
  Transmission Date: 20141002
  Serious: No
  Sender: FDA-Public Use
  Company Number: US-PFIZER INC-2014058776

PATIENT
  Sex: Female

DRUGS (6)
  1. CLEOCIN [Suspect]
     Dosage: UNK
  2. PROTONIX [Suspect]
     Dosage: UNK
  3. PREMARIN [Suspect]
     Dosage: UNK
  4. CELEBREX [Suspect]
     Dosage: UNK
  5. VISTARIL [Suspect]
     Dosage: UNK
  6. DIFLUCAN [Suspect]
     Dosage: UNK

REACTIONS (3)
  - Hypoacusis [Unknown]
  - Tinnitus [Unknown]
  - Pain [Unknown]
